FAERS Safety Report 20652514 (Version 1)
Quarter: 2022Q1

REPORT INFORMATION
  Report Type: Spontaneous
  Country: FR (occurrence: FR)
  Receive Date: 20220330
  Receipt Date: 20220330
  Transmission Date: 20220424
  Serious: Yes (Death)
  Sender: FDA-Public Use
  Company Number: None

PATIENT
  Age: 62 Year
  Sex: Male
  Weight: 65 kg

DRUGS (5)
  1. CEFTRIAXONE SODIUM [Suspect]
     Active Substance: CEFTRIAXONE SODIUM
     Indication: Endocarditis
     Dosage: 6 G, Q12H
     Route: 065
     Dates: start: 20210831, end: 20211206
  2. CEFTRIAXONE SODIUM [Suspect]
     Active Substance: CEFTRIAXONE SODIUM
     Dosage: UNK (8 DAYS)
     Route: 065
     Dates: start: 20211229, end: 20220106
  3. CEFTRIAXONE SODIUM [Suspect]
     Active Substance: CEFTRIAXONE SODIUM
     Dosage: UNK (19 DAYS)
     Route: 065
     Dates: start: 20220112, end: 20220131
  4. KEYTRUDA [Suspect]
     Active Substance: PEMBROLIZUMAB
     Indication: Bladder cancer
     Dosage: 200 MG, TIW ( POUDRE POUR SOLUTION ? DILUER POUR PERFUSION)
     Route: 041
     Dates: start: 20210722
  5. AMOXICILLIN SODIUM [Suspect]
     Active Substance: AMOXICILLIN SODIUM
     Indication: Endocarditis
     Dosage: UNK (POUDRE POUR SOLUTION INJECTABLE (I.V.) )
     Route: 065
     Dates: start: 20210805, end: 20211206

REACTIONS (2)
  - Mixed liver injury [Fatal]
  - Hepatitis [Fatal]

NARRATIVE: CASE EVENT DATE: 20210901
